FAERS Safety Report 5073180-5 (Version None)
Quarter: 2006Q3

REPORT INFORMATION
  Report Type: 
  Country: None (occurrence: None)
  Receive Date: 20060808
  Receipt Date: 20060728
  Transmission Date: 20061208
  Serious: Yes (Other)
  Sender: FDA-Public Use
  Company Number: US-JNJFOC-20060703542

PATIENT
  Sex: Female
  Weight: 64.41 kg

DRUGS (18)
  1. REMICADE [Suspect]
  2. REMICADE [Suspect]
     Indication: RHEUMATOID ARTHRITIS
  3. LEFLUNOMIDE [Concomitant]
  4. METHOTREXATE [Concomitant]
  5. ANTIBIOTICS [Concomitant]
  6. VIOXX [Concomitant]
  7. BEXTRA [Concomitant]
  8. PREVACID [Concomitant]
  9. NEXIUM [Concomitant]
  10. ZOLOFT [Concomitant]
  11. LORTAB [Concomitant]
  12. TYLENOL W/ CODEINE [Concomitant]
  13. ULTRAM [Concomitant]
  14. SKELAXIN [Concomitant]
  15. ZYRTEC [Concomitant]
  16. ZOMETO [Concomitant]
  17. AREDIA [Concomitant]
  18. SORIATANE [Concomitant]

REACTIONS (1)
  - B-CELL SMALL LYMPHOCYTIC LYMPHOMA STAGE IV [None]
